FAERS Safety Report 4894383-6 (Version None)
Quarter: 2006Q1

REPORT INFORMATION
  Report Type: 
  Country: None (occurrence: None)
  Receive Date: 20060127
  Receipt Date: 20051205
  Transmission Date: 20060701
  Serious: Yes (Death)
  Sender: FDA-Public Use
  Company Number: 2005AP06257

PATIENT
  Age: 31170 Day
  Sex: Male
  Weight: 42 kg

DRUGS (7)
  1. IRESSA [Suspect]
     Indication: NON-SMALL CELL LUNG CANCER
     Route: 048
     Dates: start: 20050627, end: 20051122
  2. HYPEN [Suspect]
     Indication: BACK PAIN
     Route: 048
     Dates: end: 20051118
  3. KYORIN-AP [Suspect]
     Indication: BACK PAIN
     Route: 048
     Dates: end: 20051118
  4. CLEANAL [Concomitant]
     Indication: PNEUMONIA
     Route: 048
     Dates: start: 20040624, end: 20051118
  5. PERSANTIN [Concomitant]
     Indication: HYPERTENSION
     Route: 048
     Dates: end: 20051118
  6. ZYRTEC [Concomitant]
     Route: 048
     Dates: end: 20051118
  7. D-ALFA [Concomitant]
     Indication: OSTEOPOROSIS
     Route: 048
     Dates: end: 20051118

REACTIONS (1)
  - DUODENAL ULCER HAEMORRHAGE [None]
